FAERS Safety Report 5508546-X (Version None)
Quarter: 2007Q4

REPORT INFORMATION
  Report Type: 
  Country: None (occurrence: None)
  Receive Date: 20071105
  Receipt Date: 20071029
  Transmission Date: 20080405
  Serious: Yes (Life-Threatening)
  Sender: FDA-Public Use
  Company Number: 2007-165935-NL

PATIENT
  Age: 30 Year
  Sex: Male

DRUGS (8)
  1. VECURONIUM BROMIDE [Suspect]
     Indication: ENDOTRACHEAL INTUBATION
     Dosage: INTRAVENOUS (NOS)
     Route: 042
     Dates: start: 20040423, end: 20040423
  2. PROPOFOL [Suspect]
     Indication: ENDOTRACHEAL INTUBATION
     Dosage: INTRAVENOUS (NOS)
     Route: 042
     Dates: start: 20040423, end: 20040423
  3. ESMOLOL HCL [Suspect]
     Indication: ENDOTRACHEAL INTUBATION
     Dosage: INTRAVENOUS (NOS)
     Route: 042
     Dates: start: 20040423, end: 20040423
  4. SEVOFLURANE [Suspect]
     Indication: MAINTENANCE OF ANAESTHESIA
     Route: 055
     Dates: start: 20040423, end: 20040423
  5. XYLOCAINE W/ EPINEPHRINE [Suspect]
     Dosage: 0.9 ML ONCE
     Route: 061
     Dates: start: 20040423, end: 20040423
  6. OXYGEN [Concomitant]
  7. NITROUS OXIDE [Concomitant]
  8. VEEN-F [Concomitant]

REACTIONS (7)
  - BLOOD PRESSURE SYSTOLIC INCREASED [None]
  - BRADYCARDIA [None]
  - CARDIOGENIC SHOCK [None]
  - CONVULSION [None]
  - DELAYED RECOVERY FROM ANAESTHESIA [None]
  - HEART RATE INCREASED [None]
  - VENTRICULAR FIBRILLATION [None]
